FAERS Safety Report 12230754 (Version 1)
Quarter: 2016Q2

REPORT INFORMATION
  Report Type: Spontaneous
  Country: FR (occurrence: FR)
  Receive Date: 20160401
  Receipt Date: 20160401
  Transmission Date: 20160815
  Serious: Yes (Life-Threatening, Other)
  Sender: FDA-Public Use
  Company Number: FR-TEVA-646941ISR

PATIENT
  Age: 58 Year
  Sex: Male

DRUGS (3)
  1. CHLORHYDRATE D^AMBROXOL [Suspect]
     Active Substance: AMBROXOL
     Indication: COUGH
     Dosage: 2 DOSAGE FORMS DAILY;
     Route: 048
     Dates: start: 20160304
  2. PARACETAMOL [Suspect]
     Active Substance: ACETAMINOPHEN
     Indication: PYREXIA
     Dosage: 1 GRAM DAILY; ONLY ONE INTAKE
     Route: 048
     Dates: start: 20160304
  3. AMOXICILLINE TEVA 1 G [Suspect]
     Active Substance: AMOXICILLIN
     Indication: BRONCHITIS
     Dosage: 1 GRAM DAILY; ONLY ONE INTAKE
     Route: 048
     Dates: start: 20160304

REACTIONS (10)
  - Eye irritation [Recovered/Resolved]
  - Abdominal pain upper [Recovered/Resolved]
  - Lip swelling [Recovered/Resolved]
  - Cyanosis [Recovered/Resolved]
  - Generalised erythema [Recovered/Resolved]
  - Chills [Recovered/Resolved]
  - Swelling face [Recovered/Resolved]
  - Pyrexia [Recovered/Resolved]
  - Pruritus [Recovered/Resolved]
  - Diarrhoea [Recovered/Resolved]

NARRATIVE: CASE EVENT DATE: 20160304
